FAERS Safety Report 12679646 (Version 1)
Quarter: 2016Q3

REPORT INFORMATION
  Report Type: Spontaneous
  Country: US (occurrence: US)
  Receive Date: 20160824
  Receipt Date: 20160824
  Transmission Date: 20161109
  Serious: No
  Sender: FDA-Public Use
  Company Number: US-PFIZER INC-2016395895

PATIENT
  Age: 63 Year
  Sex: Female
  Weight: 91 kg

DRUGS (3)
  1. IBRANCE [Suspect]
     Active Substance: PALBOCICLIB
     Indication: BREAST CANCER STAGE IV
     Dosage: 125 MG, CYCLIC, ONCE DAILY 21 DAYS ON AND 7 DAYS OFF
     Route: 048
     Dates: start: 201502
  2. LETROZOLE. [Suspect]
     Active Substance: LETROZOLE
     Dosage: 2.5 MG, 1X/DAY
     Route: 048
     Dates: start: 201502
  3. LOSARTAN AND HYDROCHLOROTHIAZIDE [Concomitant]
     Active Substance: HYDROCHLOROTHIAZIDE\LOSARTAN POTASSIUM
     Indication: BLOOD PRESSURE ABNORMAL
     Dosage: 100MG/25MG, 1 PILL, 1X/DAY
     Route: 048
     Dates: start: 201501

REACTIONS (2)
  - Vomiting [Recovered/Resolved]
  - White blood cell count decreased [Unknown]

NARRATIVE: CASE EVENT DATE: 20160819
